FAERS Safety Report 8385662-9 (Version None)
Quarter: 2012Q2

REPORT INFORMATION
  Report Type: 
  Country: None (occurrence: None)
  Receive Date: 20120525
  Receipt Date: 20120522
  Transmission Date: 20120825
  Serious: No
  Sender: FDA-Public Use
  Company Number: US-PFIZER INC-2012096302

PATIENT
  Sex: Female

DRUGS (2)
  1. CHANTIX [Suspect]
     Dosage: UNK, 2 PILLS PER DAY
  2. CHANTIX [Suspect]
     Dosage: UNK, 1 PILL PER DAY

REACTIONS (5)
  - MOOD ALTERED [None]
  - ANGER [None]
  - AGGRESSION [None]
  - CRYING [None]
  - ABNORMAL BEHAVIOUR [None]
